FAERS Safety Report 9339114 (Version 1)
Quarter: 2013Q2

REPORT INFORMATION
  Report Type: Spontaneous
  Country: US (occurrence: None)
  Receive Date: 20130606
  Receipt Date: 20130606
  Transmission Date: 20140414
  Serious: Yes (Hospitalization)
  Sender: FDA-Public Use
  Company Number: None

PATIENT
  Age: 69 Year
  Sex: Male
  Weight: 118 kg

DRUGS (3)
  1. RIVAROXABAN [Suspect]
     Indication: DEEP VEIN THROMBOSIS
     Route: 048
  2. ASPIRIN [Concomitant]
  3. CLOPIDOGREL [Concomitant]

REACTIONS (3)
  - Faeces discoloured [None]
  - Haematocrit decreased [None]
  - Haemoglobin decreased [None]
